FAERS Safety Report 8361835-6 (Version None)
Quarter: 2012Q2

REPORT INFORMATION
  Report Type: 
  Country: None (occurrence: None)
  Receive Date: 20120515
  Receipt Date: 20120504
  Transmission Date: 20120825
  Serious: Yes (Other)
  Sender: FDA-Public Use
  Company Number: US-JNJFOC-20120506743

PATIENT
  Age: 83 Year
  Sex: Male

DRUGS (2)
  1. AZATHIOPRINE [Concomitant]
     Route: 065
  2. REMICADE [Suspect]
     Indication: RHEUMATOID ARTHRITIS
     Route: 042
     Dates: start: 20020101

REACTIONS (2)
  - PULMONARY TUBERCULOSIS [None]
  - LATENT TUBERCULOSIS [None]
